FAERS Safety Report 5731298-5 (Version None)
Quarter: 2008Q2

REPORT INFORMATION
  Report Type: 
  Country: None (occurrence: None)
  Receive Date: 20080505
  Receipt Date: 20080425
  Transmission Date: 20081010
  Serious: Yes (Hospitalization)
  Sender: FDA-Public Use
  Company Number: WAES 0804FRA00022

PATIENT
  Age: 54 Year
  Sex: Female

DRUGS (7)
  1. CAP VORINOSTAT [Suspect]
     Indication: NON-SMALL CELL LUNG CANCER
     Dosage: 400 MG/DAILY
     Route: 048
     Dates: start: 20080317, end: 20080330
  2. CAP VORINOSTAT [Suspect]
     Indication: NON-SMALL CELL LUNG CANCER
     Dosage: 400 MG/DAILY
     Route: 048
     Dates: start: 20080414, end: 20080425
  3. GEMCITABINE [Suspect]
     Indication: NON-SMALL CELL LUNG CANCER
     Dosage: 1250 MG/M2/DAILY; 1000 MG/M[2]
     Route: 042
     Dates: start: 20080319, end: 20080319
  4. GEMCITABINE [Suspect]
     Indication: NON-SMALL CELL LUNG CANCER
     Dosage: 1250 MG/M2/DAILY; 1000 MG/M[2]
     Route: 042
     Dates: start: 20080326, end: 20080326
  5. GEMCITABINE [Suspect]
     Indication: NON-SMALL CELL LUNG CANCER
     Dosage: 1250 MG/M2/DAILY; 1000 MG/M[2]
     Route: 042
     Dates: start: 20080416, end: 20080416
  6. CISPLATIN [Suspect]
     Indication: NON-SMALL CELL LUNG CANCER
     Dosage: 75 MG/M2 /DAILY; 75 MG/M[2]
     Route: 042
     Dates: start: 20080319, end: 20080319
  7. CISPLATIN [Suspect]
     Indication: NON-SMALL CELL LUNG CANCER
     Dosage: 75 MG/M2 /DAILY; 75 MG/M[2]
     Route: 042
     Dates: start: 20080416, end: 20080416

REACTIONS (3)
  - EPISTAXIS [None]
  - FEBRILE NEUTROPENIA [None]
  - THROMBOCYTOPENIA [None]
